FAERS Safety Report 9035179 (Version 1)
Quarter: 2013Q1

REPORT INFORMATION
  Report Type: Report from Study
  Country: US (occurrence: US)
  Receive Date: 20130129
  Receipt Date: 20130129
  Transmission Date: 20140127
  Serious: No
  Sender: FDA-Public Use
  Company Number: US-ABBOTT-12P-163-0895070-00

PATIENT
  Age: 36 Year
  Sex: Female

DRUGS (11)
  1. HUMIRA 40 MG/0.8 ML PEN [Suspect]
     Indication: CROHN^S DISEASE
     Dates: start: 20120119
  2. TEGRETOL XR [Concomitant]
     Indication: CONVULSION
     Dosage: 200 MG IN THE AM 100 MG IN PM
     Route: 048
  3. PAROXETINE [Concomitant]
     Indication: DEPRESSION
     Route: 048
  4. PANTOPRAZOLE [Concomitant]
     Indication: GASTROOESOPHAGEAL REFLUX DISEASE
     Route: 048
  5. CLONAZEPAM [Concomitant]
     Indication: RESTLESS LEGS SYNDROME
     Route: 048
  6. CELEBREX [Concomitant]
     Indication: ARTHRITIS
     Route: 048
  7. ALLEGRA [Concomitant]
     Indication: HYPERSENSITIVITY
     Dosage: OTC
  8. ZYRTEC [Concomitant]
     Indication: HYPERSENSITIVITY
     Dosage: OTC
  9. BOTOX [Concomitant]
     Indication: DYSTONIA
     Route: 050
  10. CENTRUM ULTRA WOMEN^S ONE DAILY [Concomitant]
     Indication: SUPPLEMENTATION THERAPY
     Route: 048
  11. YAZ [Concomitant]
     Indication: PREMENSTRUAL SYNDROME
     Route: 048

REACTIONS (1)
  - Dysgeusia [Recovering/Resolving]
